FAERS Safety Report 8270267-0 (Version None)
Quarter: 2012Q2

REPORT INFORMATION
  Report Type: 
  Country: None (occurrence: None)
  Receive Date: 20120410
  Receipt Date: 20120409
  Transmission Date: 20120825
  Serious: Yes (Other)
  Sender: FDA-Public Use
  Company Number: US-PFIZER INC-2012022322

PATIENT
  Sex: Female
  Weight: 102.04 kg

DRUGS (12)
  1. RISPERDAL [Suspect]
     Indication: PSYCHOTIC DISORDER
     Dosage: 4 MG, DAILY
     Dates: start: 19920101
  2. WELLBUTRIN [Concomitant]
     Indication: DEPRESSION
     Dosage: 75 MG, 2X/DAY
  3. LEXAPRO [Concomitant]
     Indication: DEPRESSION
     Dosage: UNK
  4. ZOCOR [Concomitant]
     Indication: BLOOD CHOLESTEROL INCREASED
     Dosage: 40 MG, DAILY
  5. GEODON [Suspect]
     Indication: SCHIZOAFFECTIVE DISORDER
     Dosage: 40 MG, DAILY
     Dates: start: 20110101, end: 20110101
  6. GEODON [Suspect]
     Indication: PSYCHOTIC DISORDER
     Dosage: 80 MG, DAILY
     Dates: start: 20110101
  7. RISPERDAL [Suspect]
     Dosage: 2 MG, DAILY
  8. KLONOPIN [Concomitant]
     Indication: PANIC DISORDER
     Dosage: 1 MG, 3X/DAY
  9. ALTACE [Concomitant]
     Indication: HYPERTENSION
     Dosage: 5 MG, DAILY
  10. RISPERDAL [Suspect]
     Dosage: 3 MG, DAILY
  11. RISPERDAL [Suspect]
     Dosage: UNK
     Dates: end: 20110101
  12. COREG [Concomitant]
     Indication: HYPERTENSION
     Dosage: 6.25 MG, DAILY

REACTIONS (3)
  - BODY HEIGHT DECREASED [None]
  - WEIGHT DECREASED [None]
  - WEIGHT INCREASED [None]
